FAERS Safety Report 4777879-7 (Version None)
Quarter: 2005Q3

REPORT INFORMATION
  Report Type: 
  Country: None (occurrence: None)
  Receive Date: 20050921
  Receipt Date: 20050824
  Transmission Date: 20060218
  Serious: Yes (Death, Other)
  Sender: FDA-Public Use
  Company Number: 2005066497

PATIENT
  Sex: Female

DRUGS (1)
  1. VIAGRA [Suspect]
     Indication: PULMONARY HYPERTENSION
     Dosage: 50 MG (25 MG, BID INTERVAL: EVERDAY), ORAL
     Route: 048

REACTIONS (2)
  - BIOPSY [None]
  - POST PROCEDURAL COMPLICATION [None]
